FAERS Safety Report 6719051-7 (Version None)
Quarter: 2010Q2

REPORT INFORMATION
  Report Type: 
  Country: None (occurrence: None)
  Receive Date: 20100510
  Receipt Date: 20100510
  Transmission Date: 20101027
  Serious: Yes (Hospitalization)
  Sender: FDA-Public Use
  Company Number: None

PATIENT
  Sex: Male
  Weight: 84.8 kg

DRUGS (3)
  1. TAXOL [Suspect]
     Indication: LUNG NEOPLASM MALIGNANT
     Dosage: 50 MG/M2/IV QWK
     Route: 042
     Dates: start: 20100401
  2. CARBOPLATIN [Suspect]
     Indication: LUNG NEOPLASM MALIGNANT
     Dosage: AUC 2 IV Q WK
     Route: 042
     Dates: start: 20100401
  3. DASATINIB [Suspect]
     Indication: LUNG NEOPLASM MALIGNANT
     Dosage: 70 MG QD PO
     Route: 048
     Dates: start: 20100401

REACTIONS (7)
  - ARRHYTHMIA [None]
  - DIARRHOEA [None]
  - ELECTROLYTE IMBALANCE [None]
  - HYPOKALAEMIA [None]
  - HYPOMAGNESAEMIA [None]
  - HYPOTENSION [None]
  - SUPRAVENTRICULAR TACHYCARDIA [None]
